FAERS Safety Report 25143539 (Version 2)
Quarter: 2025Q2

REPORT INFORMATION
  Report Type: Other
  Country: GB (occurrence: GB)
  Receive Date: 20250401
  Receipt Date: 20250402
  Transmission Date: 20250717
  Serious: Yes (Other)
  Sender: GLENMARK
  Company Number: GB-MHRA-TPP49579907C9978269YC1733931989875

PATIENT
  Age: 6 Year
  Sex: Male
  Weight: 20 kg

DRUGS (3)
  1. MONTELUKAST SODIUM [Suspect]
     Active Substance: MONTELUKAST SODIUM
     Indication: Ill-defined disorder
     Route: 065
     Dates: start: 20241126
  2. BECLOMETHASONE DIPROPIONATE [Concomitant]
     Active Substance: BECLOMETHASONE DIPROPIONATE
     Indication: Ill-defined disorder
     Dosage: UNK, BID, TWO PUFFS TWICE DAILY
     Route: 065
     Dates: start: 20240407
  3. ALBUTEROL [Concomitant]
     Active Substance: ALBUTEROL
     Indication: Ill-defined disorder
     Dates: start: 20240407

REACTIONS (3)
  - Tachycardia [Unknown]
  - Vomiting [Recovered/Resolved]
  - Pyrexia [Unknown]
